FAERS Safety Report 4784627-3 (Version None)
Quarter: 2005Q3

REPORT INFORMATION
  Report Type: 
  Country: None (occurrence: None)
  Receive Date: 20050930
  Receipt Date: 20041210
  Transmission Date: 20060218
  Serious: Yes (Death, Hospitalization, Other)
  Sender: FDA-Public Use
  Company Number: US-MERCK-0412USA01376

PATIENT
  Age: 71 Year
  Sex: Male

DRUGS (1)
  1. VIOXX [Suspect]
     Indication: ARTHRALGIA
     Route: 048
     Dates: start: 20010101

REACTIONS (16)
  - BENIGN PROSTATIC HYPERPLASIA [None]
  - BLOOD BILIRUBIN INCREASED [None]
  - CARDIAC FAILURE CONGESTIVE [None]
  - CEREBROVASCULAR ACCIDENT [None]
  - DEATH [None]
  - DEPRESSION [None]
  - HALLUCINATION [None]
  - HYPERKALAEMIA [None]
  - OSTEOARTHRITIS [None]
  - PARKINSON'S DISEASE [None]
  - PNEUMONIA [None]
  - POLYTRAUMATISM [None]
  - RENAL FAILURE [None]
  - RENAL IMPAIRMENT [None]
  - SINUSITIS [None]
  - TRANSIENT ISCHAEMIC ATTACK [None]
